FAERS Safety Report 24377177 (Version 1)
Quarter: 2024Q3

REPORT INFORMATION
  Report Type: Spontaneous
  Country: US (occurrence: None)
  Receive Date: 20240927
  Receipt Date: 20240927
  Transmission Date: 20241017
  Serious: Yes (unspecified)
  Sender: Public
  Company Number: None

PATIENT
  Age: 73 Year
  Sex: Male
  Weight: 94 kg

DRUGS (1)
  1. EMPAGLIFLOZIN [Suspect]
     Active Substance: EMPAGLIFLOZIN
     Indication: Diabetes mellitus
     Dates: start: 20230509

REACTIONS (5)
  - Limb injury [None]
  - Pain in extremity [None]
  - Skin ulcer [None]
  - Purulence [None]
  - Treatment noncompliance [None]

NARRATIVE: CASE EVENT DATE: 20231027
